FAERS Safety Report 5741027-7 (Version None)
Quarter: 2008Q2

REPORT INFORMATION
  Report Type: 
  Country: None (occurrence: None)
  Receive Date: 20080516
  Receipt Date: 20080505
  Transmission Date: 20081010
  Serious: Yes (Other)
  Sender: FDA-Public Use
  Company Number: ES-PFIZER INC-2008038724

PATIENT
  Age: 55 Year
  Sex: Male

DRUGS (2)
  1. LINEZOLID [Suspect]
     Indication: STAPHYLOCOCCAL INFECTION
     Dates: start: 20080101, end: 20080101
  2. OTHER ANTIHYPERTENSIVES [Concomitant]

REACTIONS (2)
  - ANAEMIA [None]
  - RENAL FAILURE [None]
